FAERS Safety Report 5114318-0 (Version None)
Quarter: 2006Q3

REPORT INFORMATION
  Report Type: 
  Country: None (occurrence: None)
  Receive Date: 20060925
  Receipt Date: 20060921
  Transmission Date: 20061208
  Serious: Yes (Other)
  Sender: FDA-Public Use
  Company Number: CA-MERCK-0609CAN00152

PATIENT
  Sex: Male

DRUGS (1)
  1. PROPECIA [Suspect]
     Route: 048
     Dates: start: 20060101, end: 20060101

REACTIONS (1)
  - TESTIS CANCER [None]
